FAERS Safety Report 24793930 (Version 1)
Quarter: 2024Q4

REPORT INFORMATION
  Report Type: Spontaneous
  Country: CA (occurrence: CA)
  Receive Date: 20241231
  Receipt Date: 20241231
  Transmission Date: 20250115
  Serious: Yes (Congenital Anomaly)
  Sender: BRISTOL-MYERS SQUIBB COMPANY
  Company Number: CA-BRISTOL-MYERS SQUIBB COMPANY-2024-196548

PATIENT

DRUGS (333)
  1. ORENCIA [Suspect]
     Active Substance: ABATACEPT
     Indication: Product used for unknown indication
     Route: 064
  2. ORENCIA [Suspect]
     Active Substance: ABATACEPT
     Route: 064
  3. ORENCIA [Suspect]
     Active Substance: ABATACEPT
     Route: 064
  4. ORENCIA [Suspect]
     Active Substance: ABATACEPT
     Route: 064
  5. ORENCIA [Suspect]
     Active Substance: ABATACEPT
     Route: 064
  6. ORENCIA [Suspect]
     Active Substance: ABATACEPT
     Route: 064
  7. ORENCIA [Suspect]
     Active Substance: ABATACEPT
     Route: 064
  8. ORENCIA [Suspect]
     Active Substance: ABATACEPT
     Route: 064
  9. ORENCIA [Suspect]
     Active Substance: ABATACEPT
     Route: 064
  10. ORENCIA [Suspect]
     Active Substance: ABATACEPT
     Route: 064
  11. ORENCIA [Suspect]
     Active Substance: ABATACEPT
     Route: 064
  12. ORENCIA [Suspect]
     Active Substance: ABATACEPT
     Route: 064
  13. ORENCIA [Suspect]
     Active Substance: ABATACEPT
     Indication: Product used for unknown indication
     Route: 064
  14. ORENCIA [Suspect]
     Active Substance: ABATACEPT
     Route: 064
  15. ORENCIA [Suspect]
     Active Substance: ABATACEPT
     Indication: Product used for unknown indication
     Route: 064
  16. TRIAMCINOLONE ACETONIDE [Suspect]
     Active Substance: TRIAMCINOLONE ACETONIDE
     Indication: Product used for unknown indication
     Dosage: SUSPENSION INTRA- ARTICULAR
     Route: 064
  17. TRIAMCINOLONE ACETONIDE [Suspect]
     Active Substance: TRIAMCINOLONE ACETONIDE
     Route: 064
  18. TRIAMCINOLONE ACETONIDE [Suspect]
     Active Substance: TRIAMCINOLONE ACETONIDE
     Route: 064
  19. TRIAMCINOLONE ACETONIDE [Suspect]
     Active Substance: TRIAMCINOLONE ACETONIDE
     Route: 064
  20. TRIAMCINOLONE ACETONIDE [Suspect]
     Active Substance: TRIAMCINOLONE ACETONIDE
     Route: 064
  21. ACETAMINOPHEN\CODEINE PHOSPHATE [Concomitant]
     Active Substance: ACETAMINOPHEN\CODEINE PHOSPHATE
     Indication: Product used for unknown indication
     Route: 064
  22. ADALIMUMAB [Concomitant]
     Active Substance: ADALIMUMAB
     Indication: Product used for unknown indication
     Route: 064
  23. ADALIMUMAB [Concomitant]
     Active Substance: ADALIMUMAB
     Route: 064
  24. AIMOVIG [Concomitant]
     Active Substance: ERENUMAB\ERENUMAB-AOOE
     Indication: Product used for unknown indication
     Route: 064
  25. AIMOVIG [Concomitant]
     Active Substance: ERENUMAB\ERENUMAB-AOOE
     Route: 064
  26. ALENDRONATE SODIUM\CHOLECALCIFEROL [Concomitant]
     Active Substance: ALENDRONATE SODIUM\CHOLECALCIFEROL
     Indication: Product used for unknown indication
     Route: 064
  27. ALENDRONIC ACID [Concomitant]
     Active Substance: ALENDRONIC ACID
     Indication: Product used for unknown indication
     Route: 064
  28. ALENDRONIC ACID [Concomitant]
     Active Substance: ALENDRONIC ACID
     Route: 064
  29. ALENDRONIC ACID [Concomitant]
     Active Substance: ALENDRONIC ACID
     Route: 064
  30. ALENDRONIC ACID [Concomitant]
     Active Substance: ALENDRONIC ACID
     Route: 064
  31. ALENDRONATE SODIUM\CHOLECALCIFEROL [Concomitant]
     Active Substance: ALENDRONATE SODIUM\CHOLECALCIFEROL
     Indication: Product used for unknown indication
     Route: 064
  32. PREDNISONE [Concomitant]
     Active Substance: PREDNISONE
     Indication: Product used for unknown indication
     Route: 064
  33. PREDNISONE [Concomitant]
     Active Substance: PREDNISONE
     Route: 064
  34. PREDNISONE [Concomitant]
     Active Substance: PREDNISONE
     Route: 064
  35. PREDNISONE [Concomitant]
     Active Substance: PREDNISONE
     Route: 064
  36. PREDNISONE [Concomitant]
     Active Substance: PREDNISONE
     Route: 064
  37. PREDNISONE [Concomitant]
     Active Substance: PREDNISONE
     Route: 064
  38. PREDNISONE [Concomitant]
     Active Substance: PREDNISONE
     Route: 064
  39. PREDNISONE [Concomitant]
     Active Substance: PREDNISONE
     Route: 064
  40. PREDNISONE [Concomitant]
     Active Substance: PREDNISONE
     Route: 064
  41. PREDNISONE [Concomitant]
     Active Substance: PREDNISONE
     Route: 064
  42. PREDNISONE [Concomitant]
     Active Substance: PREDNISONE
     Route: 064
  43. PREDNISONE [Concomitant]
     Active Substance: PREDNISONE
     Route: 064
  44. PREDNISONE [Concomitant]
     Active Substance: PREDNISONE
     Route: 064
  45. PREDNISONE [Concomitant]
     Active Substance: PREDNISONE
     Route: 064
  46. PREDNISONE [Concomitant]
     Active Substance: PREDNISONE
     Route: 064
  47. PREDNISONE [Concomitant]
     Active Substance: PREDNISONE
     Route: 064
  48. PREDNISONE [Concomitant]
     Active Substance: PREDNISONE
     Route: 064
  49. PREDNISONE [Concomitant]
     Active Substance: PREDNISONE
     Route: 064
  50. PREDNISONE [Concomitant]
     Active Substance: PREDNISONE
     Route: 064
  51. PREDNISONE [Concomitant]
     Active Substance: PREDNISONE
     Route: 064
  52. ATOMOXETINE [Concomitant]
     Active Substance: ATOMOXETINE HYDROCHLORIDE
     Indication: Product used for unknown indication
     Route: 064
  53. AZATHIOPRINE SODIUM [Concomitant]
     Active Substance: AZATHIOPRINE SODIUM
     Indication: Product used for unknown indication
     Route: 064
  54. CANDESARTAN [Concomitant]
     Active Substance: CANDESARTAN
     Indication: Product used for unknown indication
     Route: 064
  55. CELEBREX [Concomitant]
     Active Substance: CELECOXIB
     Indication: Product used for unknown indication
     Route: 064
  56. CELEBREX [Concomitant]
     Active Substance: CELECOXIB
     Route: 064
  57. CELEBREX [Concomitant]
     Active Substance: CELECOXIB
     Route: 064
  58. CELEBREX [Concomitant]
     Active Substance: CELECOXIB
     Route: 064
  59. CERTOLIZUMAB PEGOL [Concomitant]
     Active Substance: CERTOLIZUMAB PEGOL
     Indication: Product used for unknown indication
     Route: 064
  60. CERTOLIZUMAB PEGOL [Concomitant]
     Active Substance: CERTOLIZUMAB PEGOL
     Route: 064
  61. CERTOLIZUMAB PEGOL [Concomitant]
     Active Substance: CERTOLIZUMAB PEGOL
     Route: 064
  62. CERTOLIZUMAB PEGOL [Concomitant]
     Active Substance: CERTOLIZUMAB PEGOL
     Route: 064
  63. CETIRIZINE HYDROCHLORIDE [Concomitant]
     Active Substance: CETIRIZINE HYDROCHLORIDE
     Indication: Product used for unknown indication
     Route: 064
  64. CETIRIZINE HYDROCHLORIDE [Concomitant]
     Active Substance: CETIRIZINE HYDROCHLORIDE
     Route: 064
  65. CETIRIZINE HYDROCHLORIDE [Concomitant]
     Active Substance: CETIRIZINE HYDROCHLORIDE
     Route: 064
  66. CETIRIZINE HYDROCHLORIDE [Concomitant]
     Active Substance: CETIRIZINE HYDROCHLORIDE
     Route: 064
  67. CETIRIZINE HYDROCHLORIDE [Concomitant]
     Active Substance: CETIRIZINE HYDROCHLORIDE
     Route: 064
  68. CETIRIZINE HYDROCHLORIDE [Concomitant]
     Active Substance: CETIRIZINE HYDROCHLORIDE
     Route: 064
  69. CETIRIZINE HYDROCHLORIDE [Concomitant]
     Active Substance: CETIRIZINE HYDROCHLORIDE
     Route: 064
  70. CETIRIZINE HYDROCHLORIDE [Concomitant]
     Active Substance: CETIRIZINE HYDROCHLORIDE
     Route: 064
  71. CETIRIZINE HYDROCHLORIDE [Concomitant]
     Active Substance: CETIRIZINE HYDROCHLORIDE
     Route: 064
  72. CETIRIZINE HYDROCHLORIDE [Concomitant]
     Active Substance: CETIRIZINE HYDROCHLORIDE
     Route: 064
  73. CETIRIZINE HYDROCHLORIDE [Concomitant]
     Active Substance: CETIRIZINE HYDROCHLORIDE
     Route: 064
  74. CETIRIZINE HYDROCHLORIDE [Concomitant]
     Active Substance: CETIRIZINE HYDROCHLORIDE
     Route: 064
  75. CETIRIZINE HYDROCHLORIDE [Concomitant]
     Active Substance: CETIRIZINE HYDROCHLORIDE
     Route: 064
  76. CETIRIZINE HYDROCHLORIDE [Concomitant]
     Active Substance: CETIRIZINE HYDROCHLORIDE
     Route: 064
  77. CETIRIZINE HYDROCHLORIDE [Concomitant]
     Active Substance: CETIRIZINE HYDROCHLORIDE
     Route: 064
  78. CETIRIZINE HYDROCHLORIDE [Concomitant]
     Active Substance: CETIRIZINE HYDROCHLORIDE
     Route: 064
  79. CETIRIZINE HYDROCHLORIDE [Concomitant]
     Active Substance: CETIRIZINE HYDROCHLORIDE
     Route: 064
  80. CETIRIZINE HYDROCHLORIDE [Concomitant]
     Active Substance: CETIRIZINE HYDROCHLORIDE
     Route: 064
  81. CETIRIZINE HYDROCHLORIDE [Concomitant]
     Active Substance: CETIRIZINE HYDROCHLORIDE
     Route: 064
  82. CETIRIZINE HYDROCHLORIDE [Concomitant]
     Active Substance: CETIRIZINE HYDROCHLORIDE
     Route: 064
  83. CETIRIZINE HYDROCHLORIDE [Concomitant]
     Active Substance: CETIRIZINE HYDROCHLORIDE
     Route: 064
  84. CETIRIZINE HYDROCHLORIDE [Concomitant]
     Active Substance: CETIRIZINE HYDROCHLORIDE
     Route: 064
  85. CETIRIZINE HYDROCHLORIDE [Concomitant]
     Active Substance: CETIRIZINE HYDROCHLORIDE
     Route: 064
  86. CORTISONE ACETATE [Concomitant]
     Active Substance: CORTISONE ACETATE
     Indication: Product used for unknown indication
     Route: 064
  87. CORTISONE ACETATE [Concomitant]
     Active Substance: CORTISONE ACETATE
     Route: 064
  88. CORTISONE ACETATE [Concomitant]
     Active Substance: CORTISONE ACETATE
     Route: 064
  89. COSENTYX [Concomitant]
     Active Substance: SECUKINUMAB
     Indication: Product used for unknown indication
     Route: 064
  90. COSENTYX [Concomitant]
     Active Substance: SECUKINUMAB
     Route: 064
  91. COSENTYX [Concomitant]
     Active Substance: SECUKINUMAB
     Route: 064
  92. DESOGESTREL AND ETHINYL ESTRADIOL [Concomitant]
     Active Substance: DESOGESTREL\ETHINYL ESTRADIOL
     Indication: Product used for unknown indication
     Route: 064
  93. DESOXIMETASONE [Concomitant]
     Active Substance: DESOXIMETASONE
     Indication: Product used for unknown indication
     Route: 064
  94. DESOXIMETASONE [Concomitant]
     Active Substance: DESOXIMETASONE
     Route: 064
  95. DESOXIMETASONE [Concomitant]
     Active Substance: DESOXIMETASONE
     Route: 064
  96. DESOXIMETASONE [Concomitant]
     Active Substance: DESOXIMETASONE
     Route: 064
  97. DESOXIMETASONE [Concomitant]
     Active Substance: DESOXIMETASONE
     Route: 064
  98. DESOXIMETASONE [Concomitant]
     Active Substance: DESOXIMETASONE
     Route: 064
  99. DESOXIMETASONE [Concomitant]
     Active Substance: DESOXIMETASONE
     Route: 064
  100. DESOXIMETASONE [Concomitant]
     Active Substance: DESOXIMETASONE
     Route: 064
  101. DESOXIMETASONE [Concomitant]
     Active Substance: DESOXIMETASONE
     Route: 064
  102. DESOXIMETASONE [Concomitant]
     Active Substance: DESOXIMETASONE
     Route: 064
  103. DESOXIMETASONE [Concomitant]
     Active Substance: DESOXIMETASONE
     Route: 064
  104. DESOXIMETASONE [Concomitant]
     Active Substance: DESOXIMETASONE
     Route: 064
  105. DESOXIMETASONE [Concomitant]
     Active Substance: DESOXIMETASONE
     Route: 064
  106. DESOXIMETASONE [Concomitant]
     Active Substance: DESOXIMETASONE
     Route: 064
  107. DESOXIMETASONE [Concomitant]
     Active Substance: DESOXIMETASONE
     Route: 064
  108. DESOXIMETASONE [Concomitant]
     Active Substance: DESOXIMETASONE
     Route: 064
  109. DESOXIMETASONE [Concomitant]
     Active Substance: DESOXIMETASONE
     Route: 064
  110. DESOXIMETASONE [Concomitant]
     Active Substance: DESOXIMETASONE
     Route: 064
  111. DESOXIMETASONE [Concomitant]
     Active Substance: DESOXIMETASONE
     Route: 064
  112. DESOXIMETASONE [Concomitant]
     Active Substance: DESOXIMETASONE
     Route: 064
  113. DESOXIMETASONE [Concomitant]
     Active Substance: DESOXIMETASONE
     Route: 064
  114. DESOXIMETASONE [Concomitant]
     Active Substance: DESOXIMETASONE
     Route: 064
  115. DESOXIMETASONE [Concomitant]
     Active Substance: DESOXIMETASONE
     Route: 064
  116. DESOXIMETASONE [Concomitant]
     Active Substance: DESOXIMETASONE
     Route: 064
  117. DICLOFENAC [Concomitant]
     Active Substance: DICLOFENAC
     Indication: Product used for unknown indication
     Route: 064
  118. DICLOFENAC POTASSIUM [Concomitant]
     Active Substance: DICLOFENAC POTASSIUM
     Indication: Product used for unknown indication
     Route: 064
  119. DICLOFENAC SODIUM [Concomitant]
     Active Substance: DICLOFENAC SODIUM
     Indication: Product used for unknown indication
     Route: 064
  120. DICLOFENAC SODIUM [Concomitant]
     Active Substance: DICLOFENAC SODIUM
     Route: 064
  121. DICLOFENAC SODIUM [Concomitant]
     Active Substance: DICLOFENAC SODIUM
     Route: 064
  122. ENBREL [Concomitant]
     Active Substance: ETANERCEPT
     Indication: Product used for unknown indication
     Route: 064
  123. ENBREL [Concomitant]
     Active Substance: ETANERCEPT
     Route: 064
  124. ENBREL [Concomitant]
     Active Substance: ETANERCEPT
     Route: 064
  125. ENBREL [Concomitant]
     Active Substance: ETANERCEPT
     Route: 064
  126. ENBREL [Concomitant]
     Active Substance: ETANERCEPT
     Route: 064
  127. ENBREL [Concomitant]
     Active Substance: ETANERCEPT
     Route: 064
  128. ENBREL [Concomitant]
     Active Substance: ETANERCEPT
     Route: 064
  129. ENBREL [Concomitant]
     Active Substance: ETANERCEPT
     Route: 064
  130. ENBREL [Concomitant]
     Active Substance: ETANERCEPT
     Route: 064
  131. FLUMETHASONE PIVALATE [Concomitant]
     Active Substance: FLUMETHASONE PIVALATE
     Indication: Product used for unknown indication
     Route: 064
  132. FLUMETHASONE PIVALATE [Concomitant]
     Active Substance: FLUMETHASONE PIVALATE
     Route: 064
  133. FOLIC ACID [Concomitant]
     Active Substance: FOLIC ACID
     Indication: Product used for unknown indication
     Route: 064
  134. FOLIC ACID [Concomitant]
     Active Substance: FOLIC ACID
     Route: 064
  135. FOLIC ACID [Concomitant]
     Active Substance: FOLIC ACID
     Route: 064
  136. FOLIC ACID [Concomitant]
     Active Substance: FOLIC ACID
     Route: 064
  137. FOLIC ACID [Concomitant]
     Active Substance: FOLIC ACID
     Route: 064
  138. FOLIC ACID [Concomitant]
     Active Substance: FOLIC ACID
     Route: 064
  139. FOSAMAX [Concomitant]
     Active Substance: ALENDRONATE SODIUM
     Indication: Product used for unknown indication
     Route: 064
  140. FOSAMAX [Concomitant]
     Active Substance: ALENDRONATE SODIUM
     Route: 064
  141. FOSAMAX [Concomitant]
     Active Substance: ALENDRONATE SODIUM
     Route: 064
  142. FOSAMAX [Concomitant]
     Active Substance: ALENDRONATE SODIUM
     Route: 064
  143. FOSAMAX [Concomitant]
     Active Substance: ALENDRONATE SODIUM
     Route: 064
  144. FOSAMAX [Concomitant]
     Active Substance: ALENDRONATE SODIUM
     Route: 064
  145. FOSAMAX [Concomitant]
     Active Substance: ALENDRONATE SODIUM
     Route: 064
  146. GOLD [Concomitant]
     Active Substance: GOLD
     Indication: Product used for unknown indication
     Route: 064
  147. GOLIMUMAB [Concomitant]
     Active Substance: GOLIMUMAB
     Indication: Product used for unknown indication
     Route: 064
  148. GOLIMUMAB [Concomitant]
     Active Substance: GOLIMUMAB
     Route: 064
  149. GOLIMUMAB [Concomitant]
     Active Substance: GOLIMUMAB
     Route: 064
  150. HUMIRA [Concomitant]
     Active Substance: ADALIMUMAB
     Indication: Product used for unknown indication
     Route: 064
  151. HUMIRA [Concomitant]
     Active Substance: ADALIMUMAB
     Route: 064
  152. HUMIRA [Concomitant]
     Active Substance: ADALIMUMAB
     Route: 064
  153. HUMIRA [Concomitant]
     Active Substance: ADALIMUMAB
     Route: 064
  154. HUMIRA [Concomitant]
     Active Substance: ADALIMUMAB
     Route: 064
  155. HYDROCORTISONE [Concomitant]
     Active Substance: HYDROCORTISONE
     Indication: Product used for unknown indication
     Route: 064
  156. HYDROXYCHLOROQUINE SULFATE [Concomitant]
     Active Substance: HYDROXYCHLOROQUINE SULFATE
     Indication: Product used for unknown indication
     Route: 064
  157. HYDROXYCHLOROQUINE SULFATE [Concomitant]
     Active Substance: HYDROXYCHLOROQUINE SULFATE
     Route: 064
  158. HYDROXYCHLOROQUINE SULFATE [Concomitant]
     Active Substance: HYDROXYCHLOROQUINE SULFATE
     Route: 064
  159. HYDROXYCHLOROQUINE SULFATE [Concomitant]
     Active Substance: HYDROXYCHLOROQUINE SULFATE
     Route: 064
  160. HYDROXYCHLOROQUINE SULFATE [Concomitant]
     Active Substance: HYDROXYCHLOROQUINE SULFATE
     Route: 064
  161. HYDROXYCHLOROQUINE SULFATE [Concomitant]
     Active Substance: HYDROXYCHLOROQUINE SULFATE
     Route: 064
  162. HYDROXYCHLOROQUINE SULFATE [Concomitant]
     Active Substance: HYDROXYCHLOROQUINE SULFATE
     Route: 064
  163. HYDROXYCHLOROQUINE SULFATE [Concomitant]
     Active Substance: HYDROXYCHLOROQUINE SULFATE
     Route: 064
  164. HYDROXYCHLOROQUINE SULFATE [Concomitant]
     Active Substance: HYDROXYCHLOROQUINE SULFATE
     Route: 064
  165. HYDROXYCHLOROQUINE SULFATE [Concomitant]
     Active Substance: HYDROXYCHLOROQUINE SULFATE
     Route: 064
  166. ISOPROPYL ALCOHOL [Concomitant]
     Active Substance: ISOPROPYL ALCOHOL
     Indication: Product used for unknown indication
     Route: 064
  167. ISOPROPYL ALCOHOL [Concomitant]
     Active Substance: ISOPROPYL ALCOHOL
     Route: 064
  168. LAMICTAL [Concomitant]
     Active Substance: LAMOTRIGINE
     Indication: Product used for unknown indication
     Route: 064
  169. LAMICTAL [Concomitant]
     Active Substance: LAMOTRIGINE
     Route: 064
  170. LEFLUNOMIDE [Concomitant]
     Active Substance: LEFLUNOMIDE
     Indication: Product used for unknown indication
     Route: 064
  171. LEFLUNOMIDE [Concomitant]
     Active Substance: LEFLUNOMIDE
     Route: 064
  172. LEFLUNOMIDE [Concomitant]
     Active Substance: LEFLUNOMIDE
     Route: 064
  173. LEFLUNOMIDE [Concomitant]
     Active Substance: LEFLUNOMIDE
     Route: 064
  174. LEFLUNOMIDE [Concomitant]
     Active Substance: LEFLUNOMIDE
     Route: 064
  175. LEFLUNOMIDE [Concomitant]
     Active Substance: LEFLUNOMIDE
     Route: 064
  176. MEGLUMINE [Concomitant]
     Active Substance: MEGLUMINE
     Indication: Product used for unknown indication
     Route: 064
  177. MEGLUMINE [Concomitant]
     Active Substance: MEGLUMINE
     Route: 064
  178. METHOTREXATE [Concomitant]
     Active Substance: METHOTREXATE
     Indication: Product used for unknown indication
     Route: 064
  179. METHOTREXATE [Concomitant]
     Active Substance: METHOTREXATE
     Route: 064
  180. METHOTREXATE [Concomitant]
     Active Substance: METHOTREXATE
     Route: 064
  181. METHOTREXATE [Concomitant]
     Active Substance: METHOTREXATE
     Route: 064
  182. METHOTREXATE [Concomitant]
     Active Substance: METHOTREXATE
     Route: 064
  183. METHOTREXATE [Concomitant]
     Active Substance: METHOTREXATE
     Route: 064
  184. METHOTREXATE [Concomitant]
     Active Substance: METHOTREXATE
     Route: 064
  185. METHOTREXATE [Concomitant]
     Active Substance: METHOTREXATE
     Route: 064
  186. METHOTREXATE [Concomitant]
     Active Substance: METHOTREXATE
     Route: 064
  187. METHOTREXATE [Concomitant]
     Active Substance: METHOTREXATE
     Route: 064
  188. METHOTREXATE [Concomitant]
     Active Substance: METHOTREXATE
     Route: 064
  189. METHOTREXATE [Concomitant]
     Active Substance: METHOTREXATE
     Route: 064
  190. METHOTREXATE [Concomitant]
     Active Substance: METHOTREXATE
     Route: 064
  191. METHOTREXATE [Concomitant]
     Active Substance: METHOTREXATE
     Route: 064
  192. METHOTREXATE [Concomitant]
     Active Substance: METHOTREXATE
     Route: 064
  193. METHOTREXATE [Concomitant]
     Active Substance: METHOTREXATE
     Route: 064
  194. METHOTREXATE [Concomitant]
     Active Substance: METHOTREXATE
     Route: 064
  195. METHOTREXATE [Concomitant]
     Active Substance: METHOTREXATE
     Route: 064
  196. METHOTREXATE [Concomitant]
     Active Substance: METHOTREXATE
     Route: 064
  197. METHOTREXATE [Concomitant]
     Active Substance: METHOTREXATE
     Route: 064
  198. METHOTREXATE [Concomitant]
     Active Substance: METHOTREXATE
     Route: 064
  199. METHOTREXATE [Concomitant]
     Active Substance: METHOTREXATE
     Route: 064
  200. METHOTREXATE [Concomitant]
     Active Substance: METHOTREXATE
     Route: 064
  201. METHOTREXATE [Concomitant]
     Active Substance: METHOTREXATE
     Route: 064
  202. METHYLPREDNISOLONE [Concomitant]
     Active Substance: METHYLPREDNISOLONE
     Indication: Product used for unknown indication
     Route: 064
  203. METHYLPREDNISOLONE [Concomitant]
     Active Substance: METHYLPREDNISOLONE
     Route: 064
  204. METHYLPREDNISOLONE [Concomitant]
     Active Substance: METHYLPREDNISOLONE
     Route: 064
  205. METHYLPREDNISOLONE [Concomitant]
     Active Substance: METHYLPREDNISOLONE
     Route: 064
  206. METHYLPREDNISOLONE [Concomitant]
     Active Substance: METHYLPREDNISOLONE
     Route: 064
  207. METHYLPREDNISOLONE [Concomitant]
     Active Substance: METHYLPREDNISOLONE
     Route: 064
  208. METHYLPREDNISOLONE [Concomitant]
     Active Substance: METHYLPREDNISOLONE
     Route: 064
  209. METHYLPREDNISOLONE [Concomitant]
     Active Substance: METHYLPREDNISOLONE
     Route: 064
  210. MINOCYCLINE [Concomitant]
     Active Substance: MINOCYCLINE HYDROCHLORIDE
     Indication: Product used for unknown indication
     Route: 064
  211. MINOCYCLINE [Concomitant]
     Active Substance: MINOCYCLINE HYDROCHLORIDE
     Route: 064
  212. MYRBETRIQ [Concomitant]
     Active Substance: MIRABEGRON
     Indication: Product used for unknown indication
     Route: 064
  213. MYRBETRIQ [Concomitant]
     Active Substance: MIRABEGRON
     Route: 064
  214. MYRBETRIQ [Concomitant]
     Active Substance: MIRABEGRON
     Route: 064
  215. MYRBETRIQ [Concomitant]
     Active Substance: MIRABEGRON
     Route: 064
  216. NAPROXEN [Concomitant]
     Active Substance: NAPROXEN
     Indication: Product used for unknown indication
     Route: 064
  217. NAPROXEN [Concomitant]
     Active Substance: NAPROXEN
     Route: 064
  218. NAPROXEN SODIUM [Concomitant]
     Active Substance: NAPROXEN SODIUM
     Indication: Product used for unknown indication
     Route: 064
  219. OXYCODONE [Concomitant]
     Active Substance: OXYCODONE
     Indication: Product used for unknown indication
     Route: 064
  220. PHTHALYLSULFATHIAZOLE [Concomitant]
     Active Substance: PHTHALYLSULFATHIAZOLE
     Indication: Product used for unknown indication
     Route: 064
  221. PHTHALYLSULFATHIAZOLE [Concomitant]
     Active Substance: PHTHALYLSULFATHIAZOLE
     Route: 064
  222. PHTHALYLSULFATHIAZOLE [Concomitant]
     Active Substance: PHTHALYLSULFATHIAZOLE
     Route: 064
  223. PHTHALYLSULFATHIAZOLE [Concomitant]
     Active Substance: PHTHALYLSULFATHIAZOLE
     Route: 064
  224. PHTHALYLSULFATHIAZOLE [Concomitant]
     Active Substance: PHTHALYLSULFATHIAZOLE
     Route: 064
  225. PHTHALYLSULFATHIAZOLE [Concomitant]
     Active Substance: PHTHALYLSULFATHIAZOLE
     Route: 064
  226. PHTHALYLSULFATHIAZOLE [Concomitant]
     Active Substance: PHTHALYLSULFATHIAZOLE
     Route: 064
  227. PHTHALYLSULFATHIAZOLE [Concomitant]
     Active Substance: PHTHALYLSULFATHIAZOLE
     Route: 064
  228. PHTHALYLSULFATHIAZOLE [Concomitant]
     Active Substance: PHTHALYLSULFATHIAZOLE
     Route: 064
  229. PHTHALYLSULFATHIAZOLE [Concomitant]
     Active Substance: PHTHALYLSULFATHIAZOLE
     Route: 064
  230. PHTHALYLSULFATHIAZOLE [Concomitant]
     Active Substance: PHTHALYLSULFATHIAZOLE
     Route: 064
  231. PHTHALYLSULFATHIAZOLE [Concomitant]
     Active Substance: PHTHALYLSULFATHIAZOLE
     Route: 064
  232. PHTHALYLSULFATHIAZOLE [Concomitant]
     Active Substance: PHTHALYLSULFATHIAZOLE
     Route: 064
  233. PHTHALYLSULFATHIAZOLE [Concomitant]
     Active Substance: PHTHALYLSULFATHIAZOLE
     Route: 064
  234. PREDNISONE [Concomitant]
     Active Substance: PREDNISONE
     Indication: Product used for unknown indication
     Route: 064
  235. PREDNISONE [Concomitant]
     Active Substance: PREDNISONE
     Route: 064
  236. PREDNISONE [Concomitant]
     Active Substance: PREDNISONE
     Route: 064
  237. PREDNISONE [Concomitant]
     Active Substance: PREDNISONE
     Route: 064
  238. PREDNISONE [Concomitant]
     Active Substance: PREDNISONE
     Route: 064
  239. PREDNISONE [Concomitant]
     Active Substance: PREDNISONE
     Route: 064
  240. PREDNISONE [Concomitant]
     Active Substance: PREDNISONE
     Route: 064
  241. PREDNISONE [Concomitant]
     Active Substance: PREDNISONE
     Route: 064
  242. PREDNISONE [Concomitant]
     Active Substance: PREDNISONE
     Route: 064
  243. PREDNISONE [Concomitant]
     Active Substance: PREDNISONE
     Route: 064
  244. RANITIDINE [Concomitant]
     Active Substance: RANITIDINE
     Indication: Product used for unknown indication
     Route: 064
  245. CETIRIZINE HYDROCHLORIDE\PSEUDOEPHEDRINE HYDROCHLORIDE [Concomitant]
     Active Substance: CETIRIZINE HYDROCHLORIDE\PSEUDOEPHEDRINE HYDROCHLORIDE
     Indication: Product used for unknown indication
     Route: 064
  246. CETIRIZINE HYDROCHLORIDE\PSEUDOEPHEDRINE HYDROCHLORIDE [Concomitant]
     Active Substance: CETIRIZINE HYDROCHLORIDE\PSEUDOEPHEDRINE HYDROCHLORIDE
     Route: 064
  247. CETIRIZINE HYDROCHLORIDE\PSEUDOEPHEDRINE HYDROCHLORIDE [Concomitant]
     Active Substance: CETIRIZINE HYDROCHLORIDE\PSEUDOEPHEDRINE HYDROCHLORIDE
     Route: 064
  248. CETIRIZINE HYDROCHLORIDE\PSEUDOEPHEDRINE HYDROCHLORIDE [Concomitant]
     Active Substance: CETIRIZINE HYDROCHLORIDE\PSEUDOEPHEDRINE HYDROCHLORIDE
     Route: 064
  249. CETIRIZINE HYDROCHLORIDE\PSEUDOEPHEDRINE HYDROCHLORIDE [Concomitant]
     Active Substance: CETIRIZINE HYDROCHLORIDE\PSEUDOEPHEDRINE HYDROCHLORIDE
     Route: 064
  250. CETIRIZINE HYDROCHLORIDE\PSEUDOEPHEDRINE HYDROCHLORIDE [Concomitant]
     Active Substance: CETIRIZINE HYDROCHLORIDE\PSEUDOEPHEDRINE HYDROCHLORIDE
     Route: 064
  251. CETIRIZINE HYDROCHLORIDE\PSEUDOEPHEDRINE HYDROCHLORIDE [Concomitant]
     Active Substance: CETIRIZINE HYDROCHLORIDE\PSEUDOEPHEDRINE HYDROCHLORIDE
     Route: 064
  252. REMICADE [Concomitant]
     Active Substance: INFLIXIMAB
     Indication: Product used for unknown indication
     Route: 064
  253. REMICADE [Concomitant]
     Active Substance: INFLIXIMAB
     Route: 064
  254. REMICADE [Concomitant]
     Active Substance: INFLIXIMAB
     Route: 064
  255. REMICADE [Concomitant]
     Active Substance: INFLIXIMAB
     Route: 064
  256. REMICADE [Concomitant]
     Active Substance: INFLIXIMAB
     Route: 064
  257. REMICADE [Concomitant]
     Active Substance: INFLIXIMAB
     Route: 064
  258. REMICADE [Concomitant]
     Active Substance: INFLIXIMAB
     Route: 064
  259. REMICADE [Concomitant]
     Active Substance: INFLIXIMAB
     Route: 064
  260. REMICADE [Concomitant]
     Active Substance: INFLIXIMAB
     Route: 064
  261. REMICADE [Concomitant]
     Active Substance: INFLIXIMAB
     Route: 064
  262. REMICADE [Concomitant]
     Active Substance: INFLIXIMAB
     Route: 064
  263. REMICADE [Concomitant]
     Active Substance: INFLIXIMAB
     Route: 064
  264. RITUXIMAB [Concomitant]
     Active Substance: RITUXIMAB
     Indication: Product used for unknown indication
     Route: 064
  265. RITUXIMAB [Concomitant]
     Active Substance: RITUXIMAB
     Route: 064
  266. RITUXIMAB [Concomitant]
     Active Substance: RITUXIMAB
     Route: 064
  267. RITUXIMAB [Concomitant]
     Active Substance: RITUXIMAB
     Route: 064
  268. RITUXIMAB [Concomitant]
     Active Substance: RITUXIMAB
     Route: 064
  269. RITUXIMAB [Concomitant]
     Active Substance: RITUXIMAB
     Route: 064
  270. RITUXIMAB [Concomitant]
     Active Substance: RITUXIMAB
     Route: 064
  271. RITUXIMAB [Concomitant]
     Active Substance: RITUXIMAB
     Route: 064
  272. GOLD SODIUM THIOMALATE [Concomitant]
     Active Substance: GOLD SODIUM THIOMALATE
     Indication: Product used for unknown indication
     Route: 064
  273. GOLD SODIUM THIOMALATE [Concomitant]
     Active Substance: GOLD SODIUM THIOMALATE
     Route: 064
  274. GOLD SODIUM THIOMALATE [Concomitant]
     Active Substance: GOLD SODIUM THIOMALATE
     Route: 064
  275. GOLD SODIUM THIOMALATE [Concomitant]
     Active Substance: GOLD SODIUM THIOMALATE
     Route: 064
  276. GOLD SODIUM THIOMALATE [Concomitant]
     Active Substance: GOLD SODIUM THIOMALATE
     Route: 064
  277. GOLD SODIUM THIOMALATE [Concomitant]
     Active Substance: GOLD SODIUM THIOMALATE
     Route: 064
  278. GOLD SODIUM THIOMALATE [Concomitant]
     Active Substance: GOLD SODIUM THIOMALATE
     Route: 064
  279. GOLD SODIUM THIOMALATE [Concomitant]
     Active Substance: GOLD SODIUM THIOMALATE
     Route: 064
  280. GOLD SODIUM THIOMALATE [Concomitant]
     Active Substance: GOLD SODIUM THIOMALATE
     Route: 064
  281. GOLD SODIUM THIOMALATE [Concomitant]
     Active Substance: GOLD SODIUM THIOMALATE
     Route: 064
  282. SULFAMETHOXAZOLE\TRIMETHOPRIM [Concomitant]
     Active Substance: SULFAMETHOXAZOLE\TRIMETHOPRIM
     Indication: Product used for unknown indication
     Route: 064
  283. SULFASALAZINE [Concomitant]
     Active Substance: SULFASALAZINE
     Indication: Product used for unknown indication
     Route: 064
  284. SULFASALAZINE [Concomitant]
     Active Substance: SULFASALAZINE
     Route: 064
  285. SULFASALAZINE [Concomitant]
     Active Substance: SULFASALAZINE
     Route: 064
  286. SULFASALAZINE [Concomitant]
     Active Substance: SULFASALAZINE
     Route: 064
  287. SULFASALAZINE [Concomitant]
     Active Substance: SULFASALAZINE
     Route: 064
  288. SULFASALAZINE [Concomitant]
     Active Substance: SULFASALAZINE
     Route: 064
  289. SULFASALAZINE [Concomitant]
     Active Substance: SULFASALAZINE
     Route: 064
  290. SULFASALAZINE [Concomitant]
     Active Substance: SULFASALAZINE
     Route: 064
  291. SULFASALAZINE [Concomitant]
     Active Substance: SULFASALAZINE
     Route: 064
  292. SULFASALAZINE [Concomitant]
     Active Substance: SULFASALAZINE
     Route: 064
  293. SULFASALAZINE [Concomitant]
     Active Substance: SULFASALAZINE
     Route: 064
  294. SULFASALAZINE [Concomitant]
     Active Substance: SULFASALAZINE
     Route: 064
  295. SULFASALAZINE [Concomitant]
     Active Substance: SULFASALAZINE
     Route: 064
  296. SULFASALAZINE [Concomitant]
     Active Substance: SULFASALAZINE
     Route: 064
  297. SULFASALAZINE [Concomitant]
     Active Substance: SULFASALAZINE
     Route: 064
  298. SULFASALAZINE [Concomitant]
     Active Substance: SULFASALAZINE
     Route: 064
  299. SULFASALAZINE [Concomitant]
     Active Substance: SULFASALAZINE
     Route: 064
  300. SULFASALAZINE [Concomitant]
     Active Substance: SULFASALAZINE
     Route: 064
  301. SULFASALAZINE [Concomitant]
     Active Substance: SULFASALAZINE
     Route: 064
  302. SULFASALAZINE [Concomitant]
     Active Substance: SULFASALAZINE
     Route: 064
  303. SULFASALAZINE [Concomitant]
     Active Substance: SULFASALAZINE
     Route: 064
  304. SULFASALAZINE [Concomitant]
     Active Substance: SULFASALAZINE
     Route: 064
  305. SULFASALAZINE [Concomitant]
     Active Substance: SULFASALAZINE
     Route: 064
  306. SULFASALAZINE [Concomitant]
     Active Substance: SULFASALAZINE
     Route: 064
  307. SULFASALAZINE [Concomitant]
     Active Substance: SULFASALAZINE
     Route: 064
  308. SULFASALAZINE [Concomitant]
     Active Substance: SULFASALAZINE
     Route: 064
  309. SULFASALAZINE [Concomitant]
     Active Substance: SULFASALAZINE
     Route: 064
  310. SULFASALAZINE [Concomitant]
     Active Substance: SULFASALAZINE
     Route: 064
  311. SULFASALAZINE [Concomitant]
     Active Substance: SULFASALAZINE
     Route: 064
  312. SULFASALAZINE [Concomitant]
     Active Substance: SULFASALAZINE
     Route: 064
  313. SULFASALAZINE [Concomitant]
     Active Substance: SULFASALAZINE
     Route: 064
  314. SULFASALAZINE [Concomitant]
     Active Substance: SULFASALAZINE
     Route: 064
  315. SULFASALAZINE [Concomitant]
     Active Substance: SULFASALAZINE
     Route: 064
  316. SULFASALAZINE [Concomitant]
     Active Substance: SULFASALAZINE
     Route: 064
  317. SULFASALAZINE [Concomitant]
     Active Substance: SULFASALAZINE
     Route: 064
  318. SULFASALAZINE [Concomitant]
     Active Substance: SULFASALAZINE
     Route: 064
  319. SULFASALAZINE [Concomitant]
     Active Substance: SULFASALAZINE
     Route: 064
  320. SULFASALAZINE [Concomitant]
     Active Substance: SULFASALAZINE
     Route: 064
  321. SULFASALAZINE [Concomitant]
     Active Substance: SULFASALAZINE
     Route: 064
  322. TOFACITINIB [Concomitant]
     Active Substance: TOFACITINIB
     Indication: Product used for unknown indication
     Route: 064
  323. TOFACITINIB CITRATE [Concomitant]
     Active Substance: TOFACITINIB CITRATE
     Indication: Product used for unknown indication
     Route: 064
  324. TOFACITINIB CITRATE [Concomitant]
     Active Substance: TOFACITINIB CITRATE
     Route: 064
  325. TOFACITINIB CITRATE [Concomitant]
     Active Substance: TOFACITINIB CITRATE
     Route: 064
  326. TOFACITINIB CITRATE [Concomitant]
     Active Substance: TOFACITINIB CITRATE
     Route: 064
  327. TOFACITINIB CITRATE [Concomitant]
     Active Substance: TOFACITINIB CITRATE
     Route: 064
  328. TOFACITINIB CITRATE [Concomitant]
     Active Substance: TOFACITINIB CITRATE
     Route: 064
  329. TOPIRAMATE [Concomitant]
     Active Substance: TOPIRAMATE
     Indication: Product used for unknown indication
     Route: 064
  330. TOPIRAMATE [Concomitant]
     Active Substance: TOPIRAMATE
     Route: 064
  331. TOPIRAMATE [Concomitant]
     Active Substance: TOPIRAMATE
     Route: 064
  332. TRAMADOL HYDROCHLORIDE [Concomitant]
     Active Substance: TRAMADOL HYDROCHLORIDE
     Indication: Product used for unknown indication
     Route: 064
  333. VITAMIN C [Concomitant]
     Active Substance: ASCORBIC ACID
     Indication: Product used for unknown indication
     Route: 064

REACTIONS (2)
  - Congenital anomaly [Unknown]
  - Foetal exposure during pregnancy [Unknown]
